FAERS Safety Report 21023438 (Version 1)
Quarter: 2022Q2

REPORT INFORMATION
  Report Type: Spontaneous
  Country: US (occurrence: US)
  Receive Date: 20220629
  Receipt Date: 20220629
  Transmission Date: 20220720
  Serious: No
  Sender: FDA-Public Use
  Company Number: US-SANOFI-01162618

PATIENT
  Age: 70 Year
  Sex: Female

DRUGS (2)
  1. TOUJEO [Suspect]
     Active Substance: INSULIN GLARGINE
     Indication: Type 2 diabetes mellitus
     Dosage: 50 IU, BID
     Dates: start: 2021
  2. INSULIN DETEMIR [Suspect]
     Active Substance: INSULIN DETEMIR

REACTIONS (2)
  - Injection site pain [Unknown]
  - Product use issue [Unknown]
